FAERS Safety Report 7492279-7 (Version None)
Quarter: 2011Q2

REPORT INFORMATION
  Report Type: 
  Country: None (occurrence: None)
  Receive Date: 20110519
  Receipt Date: 20101231
  Transmission Date: 20111010
  Serious: No
  Sender: FDA-Public Use
  Company Number: US-NOVEN-ALL1-2010-06655

PATIENT
  Age: 7 Year
  Sex: Female

DRUGS (1)
  1. DAYTRANA [Suspect]
     Dosage: 10 MG, UNKNOWN
     Route: 062
     Dates: start: 20090101

REACTIONS (6)
  - PSYCHOMOTOR HYPERACTIVITY [None]
  - IMPULSIVE BEHAVIOUR [None]
  - AGITATION [None]
  - DRUG ADMINISTERED AT INAPPROPRIATE SITE [None]
  - INCORRECT DRUG ADMINISTRATION DURATION [None]
  - PRODUCT QUALITY ISSUE [None]
